FAERS Safety Report 4772555-9 (Version None)
Quarter: 2005Q3

REPORT INFORMATION
  Report Type: 
  Country: None (occurrence: None)
  Receive Date: 20050919
  Receipt Date: 20050907
  Transmission Date: 20060218
  Serious: Yes (Death)
  Sender: FDA-Public Use
  Company Number: JP-BRISTOL-MYERS SQUIBB COMPANY-13104781

PATIENT

DRUGS (3)
  1. VEPESID [Suspect]
     Indication: MYELODYSPLASTIC SYNDROME
     Route: 042
  2. CYTARABINE [Concomitant]
     Route: 042
  3. NOVANTRONE [Concomitant]
     Route: 042

REACTIONS (1)
  - INFECTION [None]
